FAERS Safety Report 9783039 (Version 2)
Quarter: 2014Q2

REPORT INFORMATION
  Report Type: Report from Study
  Country: US (occurrence: US)
  Receive Date: 20131226
  Receipt Date: 20140529
  Transmission Date: 20141212
  Serious: Yes (Hospitalization)
  Sender: FDA-Public Use
  Company Number: US-ASTELLAS-2013US013433

PATIENT
  Age: 75 Year
  Sex: Male

DRUGS (8)
  1. ERLOTINIB [Suspect]
     Indication: LUNG NEOPLASM MALIGNANT
     Route: 048
     Dates: start: 201302
  2. ERLOTINIB [Suspect]
     Route: 048
  3. ERLOTINIB [Suspect]
     Dosage: UNK, UNKNOWN FREQ.
     Route: 048
     Dates: start: 20131205
  4. DILTIAZEM                          /00489702/ [Concomitant]
     Indication: BLOOD PRESSURE
     Route: 048
     Dates: start: 201310
  5. AMIODARONE [Concomitant]
     Indication: BLOOD PRESSURE
     Route: 048
     Dates: start: 201310
  6. CRESTOR [Concomitant]
     Indication: BLOOD CHOLESTEROL INCREASED
     Route: 048
     Dates: start: 2009
  7. AMBIEN [Concomitant]
     Indication: SLEEP DISORDER
     Route: 048
     Dates: start: 2010
  8. METOPROLOL [Concomitant]
     Indication: PRODUCT USED FOR UNKNOWN INDICATION
     Route: 065

REACTIONS (10)
  - Aortic stenosis [Unknown]
  - Aphagia [Recovered/Resolved]
  - Oral discomfort [Unknown]
  - Rash [Not Recovered/Not Resolved]
  - Asthenia [Recovered/Resolved]
  - Decreased appetite [Recovering/Resolving]
  - Nasopharyngitis [Unknown]
  - Pruritus [Unknown]
  - Acne [Unknown]
  - Hypersensitivity [Unknown]
